FAERS Safety Report 21485576 (Version 1)
Quarter: 2022Q4

REPORT INFORMATION
  Report Type: Spontaneous
  Country: US (occurrence: None)
  Receive Date: 20221019
  Receipt Date: 20221019
  Transmission Date: 20230113
  Serious: Yes (Hospitalization)
  Sender: FDA-Public Use
  Company Number: None

PATIENT
  Age: 85 Year
  Sex: Female

DRUGS (1)
  1. CAPECITABINE [Suspect]
     Active Substance: CAPECITABINE
     Dosage: OTHER FREQUENCY : N/A;?
     Route: 048

REACTIONS (5)
  - Constipation [None]
  - Respiratory tract infection [None]
  - Dyspnoea [None]
  - Epistaxis [None]
  - Mucosal dryness [None]

NARRATIVE: CASE EVENT DATE: 20221019
